FAERS Safety Report 10077441 (Version 3)
Quarter: 2014Q2

REPORT INFORMATION
  Report Type: Spontaneous
  Country: ES (occurrence: None)
  Receive Date: 20140411
  Receipt Date: 20140514
  Transmission Date: 20141212
  Serious: Yes (Other)
  Sender: FDA-Public Use
  Company Number: TPU2014-00085

PATIENT
  Age: 58 Year
  Sex: Female

DRUGS (9)
  1. LIDOCAINE [Suspect]
     Indication: BACK PAIN
     Dosage: 2 PLASTER, 1 IN 1 D, TOPICAL
     Route: 061
     Dates: start: 20140217, end: 20140320
  2. PARACETAMOL (PARACETAMOL) [Concomitant]
  3. METFORMIN (METFORMIN) [Concomitant]
  4. INSULIN (INSULIN) [Concomitant]
  5. IRBESARTAN HYDROCHLOROTHIAZIDE (KARVEA HCT) [Concomitant]
  6. AMLODIPINE (AMLODIPINE) [Concomitant]
  7. ACETYLSALICYLIC ACID (ACETYLSALICYLIC ACID) [Concomitant]
  8. VENLAFAXINE (VENLAFAXINE) [Concomitant]
  9. TRAMADOL HYDROCHLORIDE (TRAMADOL HYDROCHLORIDE) [Concomitant]

REACTIONS (2)
  - Extrasystoles [None]
  - Extrasystoles [None]
